FAERS Safety Report 8297799-3 (Version None)
Quarter: 2012Q2

REPORT INFORMATION
  Report Type: 
  Country: None (occurrence: None)
  Receive Date: 20120419
  Receipt Date: 20120417
  Transmission Date: 20120825
  Serious: Yes (Death)
  Sender: FDA-Public Use
  Company Number: IT-ASTELLAS-2012EU002832

PATIENT
  Sex: Male

DRUGS (1)
  1. MICAFUNGIN INJECTION [Suspect]
     Dosage: 100 MG, UNKNOWN/D
     Route: 042
     Dates: start: 20120105

REACTIONS (1)
  - DEATH [None]
